FAERS Safety Report 15010616 (Version 2)
Quarter: 2018Q3

REPORT INFORMATION
  Report Type: Spontaneous
  Country: US (occurrence: US)
  Receive Date: 20180614
  Receipt Date: 20180726
  Transmission Date: 20181010
  Serious: No
  Sender: FDA-Public Use
  Company Number: US-ASTRAZENECA-2018SE65582

PATIENT
  Age: 1075 Month
  Sex: Female
  Weight: 47.6 kg

DRUGS (1)
  1. SYMBICORT [Suspect]
     Active Substance: BUDESONIDE\FORMOTEROL FUMARATE DIHYDRATE
     Indication: DRUG THERAPY
     Dosage: 160/4.5 MCG TWO INHALATIONS TWICE A DAY
     Route: 055
     Dates: start: 201805

REACTIONS (5)
  - Device failure [Unknown]
  - Off label use [Unknown]
  - Intentional device misuse [Not Recovered/Not Resolved]
  - Product use in unapproved indication [Unknown]
  - Body height decreased [Unknown]

NARRATIVE: CASE EVENT DATE: 201805
